FAERS Safety Report 8181094-7 (Version None)
Quarter: 2012Q1

REPORT INFORMATION
  Report Type: 
  Country: None (occurrence: None)
  Receive Date: 20120302
  Receipt Date: 20120223
  Transmission Date: 20120608
  Serious: Yes (Other)
  Sender: FDA-Public Use
  Company Number: JP-MERCK-1202USA04172

PATIENT
  Age: 86 Year
  Sex: Female

DRUGS (9)
  1. ASPIRIN [Concomitant]
     Indication: PLATELET AGGREGATION INHIBITION
     Route: 048
  2. CELECOXIB [Concomitant]
     Indication: PAIN
     Route: 048
  3. FOSAMAX [Suspect]
     Indication: OSTEOPOROSIS
     Route: 048
     Dates: start: 20071217
  4. JANUVIA [Concomitant]
     Indication: DIABETES MELLITUS
     Route: 048
  5. CADUET [Concomitant]
     Indication: LIPIDS ABNORMAL
     Dosage: DAILY DOSAGE UNKNOWN
     Route: 048
  6. AMARYL [Concomitant]
     Indication: DIABETES MELLITUS
     Route: 048
  7. REBAMIPIDE [Concomitant]
     Indication: GASTROINTESTINAL DISORDER
     Route: 048
  8. MAGNESIUM OXIDE [Concomitant]
     Route: 048
  9. CADUET [Concomitant]
     Indication: HYPERTENSION
     Dosage: DAILY DOSAGE UNKNOWN
     Route: 048

REACTIONS (2)
  - CELLULITIS [None]
  - OSTEOMYELITIS [None]
